FAERS Safety Report 6297281-9 (Version None)
Quarter: 2009Q3

REPORT INFORMATION
  Report Type: 
  Country: None (occurrence: None)
  Receive Date: 20090804
  Receipt Date: 20090804
  Transmission Date: 20100115
  Serious: Yes (Life-Threatening, Hospitalization, Disabling)
  Sender: FDA-Public Use
  Company Number: None

PATIENT
  Sex: Female
  Weight: 122.4712 kg

DRUGS (1)
  1. AVANDIA [Suspect]
     Indication: DIABETES MELLITUS
     Dosage: 4MG 1/DAY
     Dates: start: 20010201, end: 20090501

REACTIONS (4)
  - ANKLE FRACTURE [None]
  - CARDIAC FAILURE CONGESTIVE [None]
  - IMPAIRED HEALING [None]
  - UTERINE CANCER [None]
